FAERS Safety Report 7910827-7 (Version None)
Quarter: 2011Q4

REPORT INFORMATION
  Report Type: 
  Country: None (occurrence: None)
  Receive Date: 20111114
  Receipt Date: 20111107
  Transmission Date: 20120403
  Serious: Yes (Death, Hospitalization, Other)
  Sender: FDA-Public Use
  Company Number: US-BIOGENIDEC-2011BI016817

PATIENT
  Age: 69 Year
  Sex: Female

DRUGS (2)
  1. COUMADIN [Concomitant]
     Indication: THROMBOSIS PROPHYLAXIS
     Dates: end: 20110701
  2. TYSABRI [Suspect]
     Indication: MULTIPLE SCLEROSIS
     Route: 042
     Dates: start: 20091012, end: 20110413

REACTIONS (8)
  - METASTATIC NEOPLASM [None]
  - LYMPHOMA [None]
  - BONE NEOPLASM [None]
  - CEREBROVASCULAR ACCIDENT [None]
  - UPPER GASTROINTESTINAL HAEMORRHAGE [None]
  - FALL [None]
  - DEATH [None]
  - LUNG NEOPLASM [None]
